FAERS Safety Report 13423827 (Version 2)
Quarter: 2017Q3

REPORT INFORMATION
  Report Type: Spontaneous
  Country: CA (occurrence: CA)
  Receive Date: 20170410
  Receipt Date: 20170914
  Transmission Date: 20171127
  Serious: Yes (Hospitalization, Other)
  Sender: FDA-Public Use
  Company Number: CA-SYMPLMED PHARMACEUTICALS-2017SYMPLMED000442

PATIENT

DRUGS (2)
  1. COVERSYL                           /00790702/ [Suspect]
     Active Substance: PERINDOPRIL
     Indication: PRODUCT USED FOR UNKNOWN INDICATION
     Dosage: UNK
     Route: 048
     Dates: start: 20170129
  2. VIACORAM [Suspect]
     Active Substance: AMLODIPINE BESYLATE\PERINDOPRIL ARGININE
     Indication: PRODUCT USED FOR UNKNOWN INDICATION
     Dosage: 1 (7MG/5MG) TABLET, QD
     Route: 048
     Dates: start: 20170119, end: 20170128

REACTIONS (8)
  - Blood pressure increased [Recovered/Resolved]
  - Dermatitis allergic [Recovered/Resolved]
  - Heart rate increased [Recovered/Resolved]
  - Dyspnoea [Unknown]
  - Ocular hyperaemia [Recovered/Resolved]
  - Angioedema [Recovered/Resolved]
  - Peripheral swelling [Recovered/Resolved]
  - Erythema [Recovered/Resolved]

NARRATIVE: CASE EVENT DATE: 20170127
